FAERS Safety Report 7764200-5 (Version None)
Quarter: 2011Q3

REPORT INFORMATION
  Report Type: 
  Country: None (occurrence: None)
  Receive Date: 20110916
  Receipt Date: 20110907
  Transmission Date: 20111222
  Serious: Yes (Other)
  Sender: FDA-Public Use
  Company Number: JP-2011-2101

PATIENT
  Age: 80 Year
  Sex: Male

DRUGS (1)
  1. NAVELBINE [Suspect]
     Indication: MESOTHELIOMA MALIGNANT

REACTIONS (1)
  - INTERSTITIAL LUNG DISEASE [None]
